FAERS Safety Report 4338567-4 (Version None)
Quarter: 2004Q2

REPORT INFORMATION
  Report Type: 
  Country: None (occurrence: None)
  Receive Date: 20040409
  Receipt Date: 20040326
  Transmission Date: 20050107
  Serious: Yes (Hospitalization, Other)
  Sender: FDA-Public Use
  Company Number: 2004-BP-00883NB

PATIENT
  Age: 36 Year
  Sex: Male

DRUGS (4)
  1. VIRAMUNE [Suspect]
     Indication: HIV INFECTION
     Dosage: 200 MG (200 MG) PO
     Route: 048
     Dates: start: 20020320
  2. COMBIVIR [Suspect]
     Indication: HIV INFECTION
     Dosage: 2 ANZ PO
     Route: 048
     Dates: start: 20020320
  3. BENAMBAX (PENTAMIDINE) [Concomitant]
  4. ALLEGRA [Concomitant]

REACTIONS (8)
  - ANAEMIA [None]
  - CHOKING [None]
  - DIARRHOEA [None]
  - FATIGUE [None]
  - LACTIC ACIDOSIS [None]
  - MALAISE [None]
  - PALPITATIONS [None]
  - RHINITIS ALLERGIC [None]
